FAERS Safety Report 19279550 (Version 1)
Quarter: 2021Q2

REPORT INFORMATION
  Report Type: Spontaneous
  Country: NL (occurrence: NL)
  Receive Date: 20210520
  Receipt Date: 20210520
  Transmission Date: 20210717
  Serious: Yes (Hospitalization)
  Sender: FDA-Public Use
  Company Number: NL-TEVA-2021-NL-1912445

PATIENT
  Age: 59 Year
  Sex: Female
  Weight: 88 kg

DRUGS (9)
  1. HYDROCORTISON INFVLST CONC 5MG/ML ? NON?CURRENT DRUG / BRAND NAME NOT [Suspect]
     Active Substance: HYDROCORTISONE
     Indication: PITUITARY GLAND OPERATION
     Dosage: 1ST DAY, 15 HOURS, 50 MILLIGRAMS IN THE INFUSION, VERY VIOLENT REACTION, 19 HOURS IN TABLET 4 PIECES
     Dates: start: 20210416
  2. HYDROCORTISON TABLET  5MG / BRAND NAME NOT SPECIFIED [Suspect]
     Active Substance: HYDROCORTISONE
     Dosage: UNIT DOSE : 20 MG , DAY 4, 7 HOURS, 4 PIECES OF 5 MILLIGRAMS IN A VIOLENT REACTION AGAIN , THERAPY E
     Dates: start: 20210419
  3. HYDROCORTISON TABLET  5MG / BRAND NAME NOT SPECIFIED [Suspect]
     Active Substance: HYDROCORTISONE
     Dosage: UNIT DOSE : 20 MG , DAY 3, 8 HOURS, 4 PIECES 5 MILLIGRAMS, WITHOUT PREJUDICE TO REACTION, 18 HOURS O
     Dates: start: 20210418
  4. OXAZEPAM TABLET 10MG / BRAND NAME NOT SPECIFIED [Concomitant]
     Active Substance: OXAZEPAM
     Dosage: 10 MG (MILLIGRAM) , THERAPY START DATE AND END DATE : ASKU
  5. HYDROCORTISON TABLET 5MG / BRAND NAME NOT SPECIFIED [Suspect]
     Active Substance: HYDROCORTISONE
     Indication: PITUITARY GLAND OPERATION
     Dosage: UNIT DOSE : 80 MG , 1ST DAY, 15 HOURS, 50 MILLIGRAMS IN THE INFUSION, VERY VIOLENT REACTION, 19 HOUR
     Dates: start: 20210416
  6. HYDROCORTISON TABLET  5MG / BRAND NAME NOT SPECIFIED [Suspect]
     Active Substance: HYDROCORTISONE
     Dosage: UNIT DOSE : 20 MG , DAY 2, 8 HOURS, 4 PIECES OF 5 MILLIGRAMS , THERAPY END DATE : ASKU
     Dates: start: 20210417
  7. HYDROCORTISON TABLET  5MG / BRAND NAME NOT SPECIFIED [Suspect]
     Active Substance: HYDROCORTISONE
     Dosage: UNIT DOSE : 20 MG , DAY 5 8.15 AM, 4 PIECES 5 MILLIGRAMS , THERAPY END DATE : ASKU
     Dates: start: 20210420
  8. MORFINE INJECTIE/INFUUS / BRAND NAME NOT SPECIFIED [Concomitant]
     Active Substance: MORPHINE
     Dosage: INJECTION / INFUSION , THERAPY END DATE : ASKU
     Dates: start: 202104
  9. PARACETAMOL TABLET  500MG / BRAND NAME NOT SPECIFIED [Concomitant]
     Dosage: THERAPY END DATE : ASKU
     Dates: start: 202104

REACTIONS (14)
  - Pulmonary pain [Recovering/Resolving]
  - Feeling cold [Unknown]
  - Tremor [Unknown]
  - Dry mouth [Recovering/Resolving]
  - Lip dry [Recovering/Resolving]
  - Nightmare [Unknown]
  - Dry throat [Recovering/Resolving]
  - Fear of death [Recovering/Resolving]
  - Insomnia [Unknown]
  - Tongue dry [Recovering/Resolving]
  - Dyspnoea [Recovering/Resolving]
  - Feeling hot [Unknown]
  - Withdrawal syndrome [Unknown]
  - Aptyalism [Recovering/Resolving]

NARRATIVE: CASE EVENT DATE: 202104
